FAERS Safety Report 23799094 (Version 1)
Quarter: 2024Q2

REPORT INFORMATION
  Report Type: Spontaneous
  Country: US (occurrence: US)
  Receive Date: 20240430
  Receipt Date: 20240430
  Transmission Date: 20240715
  Serious: No
  Sender: FDA-Public Use
  Company Number: US-PFIZER INC-PV202400034824

PATIENT
  Age: 71 Year
  Sex: Female

DRUGS (1)
  1. IBRANCE [Suspect]
     Active Substance: PALBOCICLIB
     Dosage: TAKE 1 TABLET DAILY, THEN 7 DAYS OFF, 28-DAY SUPPLY
     Route: 048
     Dates: start: 20021116

REACTIONS (1)
  - Nasopharyngitis [Not Recovered/Not Resolved]
